FAERS Safety Report 19115021 (Version 1)
Quarter: 2021Q2

REPORT INFORMATION
  Report Type: Spontaneous
  Country: JP (occurrence: JP)
  Receive Date: 20210408
  Receipt Date: 20210408
  Transmission Date: 20210717
  Serious: Yes (Death, Other)
  Sender: FDA-Public Use
  Company Number: JP-VALIDUS PHARMACEUTICALS LLC-JP-2021VAL000310

PATIENT
  Age: 62 Year
  Sex: Male

DRUGS (2)
  1. LASIX [Suspect]
     Active Substance: FUROSEMIDE
     Indication: PRODUCT USED FOR UNKNOWN INDICATION
     Dosage: 60 MG, QD
     Route: 048
     Dates: start: 20190528, end: 20190609
  2. SAMSCA [Suspect]
     Active Substance: TOLVAPTAN
     Indication: CARDIAC FAILURE CONGESTIVE
     Dosage: 15 MG, QD
     Route: 048
     Dates: start: 20190606, end: 20190609

REACTIONS (2)
  - Chronic obstructive pulmonary disease [Fatal]
  - Pulmonary hypertension [Fatal]

NARRATIVE: CASE EVENT DATE: 20190606
